FAERS Safety Report 8523929-1 (Version None)
Quarter: 2012Q3

REPORT INFORMATION
  Report Type: 
  Country: None (occurrence: None)
  Receive Date: 20120720
  Receipt Date: 20120710
  Transmission Date: 20120928
  Serious: Yes (Life-Threatening, Hospitalization, Other)
  Sender: FDA-Public Use
  Company Number: FR-BRISTOL-MYERS SQUIBB COMPANY-12776605

PATIENT
  Age: 61 Year
  Sex: Female
  Weight: 120 kg

DRUGS (3)
  1. CEFEPIME [Suspect]
     Dosage: 2 GRAMS DAILY ON 12-OCT-2004, INTERRUPTED FROM 13- TO 15-OCT-2004
     Route: 042
     Dates: start: 20041011, end: 20041020
  2. TENORMIN [Concomitant]
     Dates: start: 20041009, end: 20041013
  3. ESIDRIX [Concomitant]
     Route: 048
     Dates: start: 20041006, end: 20041013

REACTIONS (3)
  - OVERDOSE [None]
  - STATUS EPILEPTICUS [None]
  - CONFUSIONAL STATE [None]
